FAERS Safety Report 17037873 (Version 1)
Quarter: 2019Q4

REPORT INFORMATION
  Report Type: Spontaneous
  Country: CA (occurrence: CA)
  Receive Date: 20191115
  Receipt Date: 20191115
  Transmission Date: 20200122
  Serious: Yes (Death, Other)
  Sender: FDA-Public Use
  Company Number: CA-PFIZER INC-2019491236

PATIENT
  Age: 20 Month
  Sex: Male

DRUGS (8)
  1. VINCRISTINE SULFATE. [Suspect]
     Active Substance: VINCRISTINE SULFATE
     Indication: ATYPICAL TERATOID/RHABDOID TUMOUR OF CNS
     Dosage: 0.05 MG/KG, UNK
     Route: 065
  2. FILGRASTIM [Suspect]
     Active Substance: FILGRASTIM
     Indication: PROPHYLAXIS
     Dosage: 5.0 UG/KG, UNK
     Route: 065
  3. CISPLATIN. [Suspect]
     Active Substance: CISPLATIN
     Indication: ATYPICAL TERATOID/RHABDOID TUMOUR OF CNS
     Dosage: 3.5 MG/KG, UNK
     Route: 042
  4. ETOPOSIDE. [Suspect]
     Active Substance: ETOPOSIDE
     Indication: ATYPICAL TERATOID/RHABDOID TUMOUR OF CNS
     Dosage: 2.5 MG/KG, UNK (1 EVERY 3 DAY(S))
     Route: 065
  5. GRANULOCYTE COLONY STIMULATING FACTOR [Suspect]
     Active Substance: GRANULOCYTE COLONY-STIMULATING FACTOR NOS
     Indication: PROPHYLAXIS
     Dosage: 5.0 UG/KG, UNK
     Route: 065
  6. PROCYTOX [Suspect]
     Active Substance: CYCLOPHOSPHAMIDE
     Indication: ATYPICAL TERATOID/RHABDOID TUMOUR OF CNS
     Dosage: 60 MG/KG, UNK (1 EVERY 2 DAY(S))
     Route: 065
  7. MICAFUNGIN SODIUM [Concomitant]
     Active Substance: MICAFUNGIN SODIUM
     Indication: HEPATIC CANDIDIASIS
     Dosage: UNK
     Route: 065
  8. METHOTREXATE SODIUM. [Suspect]
     Active Substance: METHOTREXATE SODIUM
     Indication: ATYPICAL TERATOID/RHABDOID TUMOUR OF CNS
     Dosage: UNK
     Route: 042

REACTIONS (16)
  - Neoplasm progression [Fatal]
  - Neutropenia [Fatal]
  - Pyrexia [Fatal]
  - Off label use [Unknown]
  - Adenovirus infection [Fatal]
  - Abdominal discomfort [Fatal]
  - Adenoviral hepatitis [Fatal]
  - Cystitis haemorrhagic [Fatal]
  - Hypotension [Fatal]
  - Tachycardia [Fatal]
  - Rhinorrhoea [Fatal]
  - Hepatic candidiasis [Fatal]
  - Hepatic necrosis [Fatal]
  - Hypogammaglobulinaemia [Fatal]
  - Diarrhoea [Fatal]
  - Product use in unapproved indication [Unknown]
